FAERS Safety Report 8118867-2 (Version None)
Quarter: 2012Q1

REPORT INFORMATION
  Report Type: 
  Country: None (occurrence: None)
  Receive Date: 20120207
  Receipt Date: 20120201
  Transmission Date: 20120608
  Serious: Yes (Other)
  Sender: FDA-Public Use
  Company Number: US-ELI_LILLY_AND_COMPANY-US201202000800

PATIENT
  Sex: Female

DRUGS (1)
  1. ALIMTA [Suspect]
     Dosage: UNK, UNKNOWN

REACTIONS (4)
  - CREATININE RENAL CLEARANCE DECREASED [None]
  - MEDICATION ERROR [None]
  - OVERDOSE [None]
  - BLOOD COUNT ABNORMAL [None]
